FAERS Safety Report 13940269 (Version 1)
Quarter: 2017Q3

REPORT INFORMATION
  Report Type: Spontaneous
  Country: US (occurrence: US)
  Receive Date: 20170906
  Receipt Date: 20170906
  Transmission Date: 20171127
  Serious: Yes (Other)
  Sender: FDA-Public Use
  Company Number: US-SAOL THERAPEUTICS-0500110329

PATIENT
  Age: 46 Year
  Sex: Male
  Weight: 131.52 kg

DRUGS (4)
  1. LIORESAL [Suspect]
     Active Substance: BACLOFEN
     Indication: PAIN
     Dosage: 70 ?G, \DAY
     Route: 037
     Dates: start: 200708
  2. COMPOUNDED BACLOFEN [Suspect]
     Active Substance: BACLOFEN
     Dosage: UNK
     Dates: start: 200612, end: 200708
  3. LIORESAL [Suspect]
     Active Substance: BACLOFEN
     Indication: POST LAMINECTOMY SYNDROME
     Dosage: UNK
     Dates: end: 2013
  4. ORAL BACLOFEN [Suspect]
     Active Substance: BACLOFEN
     Dosage: UNK

REACTIONS (14)
  - Medical device site bruise [Unknown]
  - Medical device site erythema [Unknown]
  - Hyperhidrosis [Unknown]
  - Back pain [Unknown]
  - Condition aggravated [Recovering/Resolving]
  - Medical device pain [Unknown]
  - Skin haemorrhage [Unknown]
  - Tooth discolouration [Unknown]
  - Gingival recession [Unknown]
  - Gallbladder disorder [Unknown]
  - Tremor [Unknown]
  - Nausea [Unknown]
  - Tooth loss [Recovered/Resolved]
  - Malaise [Unknown]

NARRATIVE: CASE EVENT DATE: 20040329
